FAERS Safety Report 14749597 (Version 1)
Quarter: 2018Q2

REPORT INFORMATION
  Report Type: Spontaneous
  Country: US (occurrence: US)
  Receive Date: 20180411
  Receipt Date: 20180411
  Transmission Date: 20180711
  Serious: Yes (Other)
  Sender: FDA-Public Use
  Company Number: US-SHIRE-US201812462

PATIENT
  Age: 62 Year

DRUGS (3)
  1. ZETIA [Concomitant]
     Active Substance: EZETIMIBE
     Indication: BLOOD CHOLESTEROL
  2. ADDERALL XR [Suspect]
     Active Substance: AMPHETAMINE ASPARTATE\AMPHETAMINE SULFATE\DEXTROAMPHETAMINE SACCHARATE\DEXTROAMPHETAMINE SULFATE
     Indication: CRANIOCEREBRAL INJURY
     Dosage: 10 MG, QD TO BID DAILY
     Route: 048
     Dates: start: 2006
  3. VITAMIN D                          /00107901/ [Concomitant]
     Active Substance: ERGOCALCIFEROL
     Indication: PRODUCT USED FOR UNKNOWN INDICATION

REACTIONS (7)
  - C-reactive protein decreased [Unknown]
  - Osteonecrosis [Unknown]
  - Lethargy [Unknown]
  - Off label use [Unknown]
  - Immune system disorder [Unknown]
  - Red blood cell sedimentation rate decreased [Unknown]
  - Heart rate increased [Unknown]
